FAERS Safety Report 6698069-7 (Version None)
Quarter: 2010Q2

REPORT INFORMATION
  Report Type: 
  Country: None (occurrence: None)
  Receive Date: 20100427
  Receipt Date: 20100423
  Transmission Date: 20101027
  Serious: Yes (Hospitalization, Other)
  Sender: FDA-Public Use
  Company Number: TW-ROXANE LABORATORIES, INC.-2010-RO-00460RO

PATIENT
  Age: 49 Year
  Sex: Female

DRUGS (7)
  1. LITHIUM CARBONATE [Suspect]
     Indication: BIPOLAR DISORDER
     Dosage: 600 MG
  2. PROPRANOLOL [Suspect]
     Indication: BIPOLAR DISORDER
     Dosage: 30 MG
  3. VALPROIC ACID [Suspect]
     Indication: MANIA
     Dosage: 1000 MG
  4. VALPROIC ACID [Suspect]
     Indication: BIPOLAR DISORDER
  5. NORMAL SALINE [Concomitant]
     Indication: FLUID REPLACEMENT
     Route: 042
  6. DEXTROSE SOLUTION [Concomitant]
     Indication: FLUID REPLACEMENT
  7. DESMOPRESSIN ACETATE [Concomitant]
     Route: 058

REACTIONS (6)
  - DELIRIUM [None]
  - ELECTROLYTE IMBALANCE [None]
  - HYPERCALCAEMIA [None]
  - MANIA [None]
  - NEPHROGENIC DIABETES INSIPIDUS [None]
  - RENAL FAILURE [None]
